FAERS Safety Report 6620542-8 (Version None)
Quarter: 2010Q1

REPORT INFORMATION
  Report Type: 
  Country: None (occurrence: None)
  Receive Date: 20100309
  Receipt Date: 20100303
  Transmission Date: 20100710
  Serious: Yes (Death)
  Sender: FDA-Public Use
  Company Number: TR-ELI_LILLY_AND_COMPANY-TR201003001162

PATIENT
  Age: 82 Year
  Sex: Male

DRUGS (2)
  1. HUMULIN 70/30 [Suspect]
     Indication: DIABETES MELLITUS
     Dosage: 12 IU, EACH MORNING
     Route: 058
     Dates: end: 20100103
  2. HUMULIN 70/30 [Suspect]
     Dosage: 18 IU, EACH EVENING
     Route: 058
     Dates: end: 20100103

REACTIONS (1)
  - DEATH [None]
